FAERS Safety Report 17323645 (Version 3)
Quarter: 2021Q4

REPORT INFORMATION
  Report Type: Spontaneous
  Country: AU (occurrence: AU)
  Receive Date: 20200127
  Receipt Date: 20211108
  Transmission Date: 20220303
  Serious: Yes (Other)
  Sender: FDA-Public Use
  Company Number: AU-CIPLA LTD.-2020AU00496

PATIENT

DRUGS (5)
  1. ESCITALOPRAM [Suspect]
     Active Substance: ESCITALOPRAM OXALATE
     Indication: Product used for unknown indication
     Dosage: UNK
     Route: 065
  2. MELATONIN [Suspect]
     Active Substance: MELATONIN
     Indication: Product used for unknown indication
     Dosage: UNK
     Route: 065
  3. OCRELIZUMAB [Suspect]
     Active Substance: OCRELIZUMAB
     Indication: Product used for unknown indication
     Dosage: UNK
     Route: 065
  4. AMITRIPTYLINE [Suspect]
     Active Substance: AMITRIPTYLINE
     Indication: Product used for unknown indication
     Dosage: UNK
     Route: 065
  5. GILENYA [Suspect]
     Active Substance: FINGOLIMOD HYDROCHLORIDE
     Indication: Product used for unknown indication
     Dosage: UNK
     Route: 065

REACTIONS (26)
  - Multiple sclerosis relapse [Unknown]
  - Genital herpes [Unknown]
  - Parasitic gastroenteritis [Unknown]
  - Perineal infection [Unknown]
  - Respiratory tract infection [Unknown]
  - Diplopia [Unknown]
  - Urinary tract infection [Unknown]
  - Visual impairment [Unknown]
  - Urethritis [Unknown]
  - Blood albumin decreased [Unknown]
  - Fibrin D dimer increased [Unknown]
  - Glomerular filtration rate decreased [Unknown]
  - Stress [Unknown]
  - Sinus rhythm [Unknown]
  - Respiratory rate increased [Unknown]
  - Gait disturbance [Unknown]
  - Muscle spasms [Unknown]
  - Muscular weakness [Unknown]
  - Headache [Unknown]
  - Paraesthesia [Unknown]
  - Fatigue [Unknown]
  - Pain in extremity [Unknown]
  - Arthralgia [Unknown]
  - Musculoskeletal pain [Unknown]
  - Dry mouth [Unknown]
  - Tachycardia [Unknown]
